FAERS Safety Report 11525602 (Version 1)
Quarter: 2015Q3

REPORT INFORMATION
  Report Type: Report from Study
  Country: GB (occurrence: GB)
  Receive Date: 20150918
  Receipt Date: 20150918
  Transmission Date: 20151125
  Serious: Yes (Hospitalization)
  Sender: FDA-Public Use
  Company Number: GB-ABBVIE-15K-167-1463795-00

PATIENT
  Age: 77 Year
  Sex: Female

DRUGS (2)
  1. METHOTREXATE [Concomitant]
     Active Substance: METHOTREXATE
     Indication: RHEUMATOID ARTHRITIS
  2. HUMIRA [Suspect]
     Active Substance: ADALIMUMAB
     Indication: RHEUMATOID ARTHRITIS
     Route: 058
     Dates: start: 20050406

REACTIONS (6)
  - Post procedural infection [Unknown]
  - Femur fracture [Unknown]
  - Bone disorder [Unknown]
  - Joint dislocation [Unknown]
  - Wound infection staphylococcal [Unknown]
  - Hip fracture [Unknown]

NARRATIVE: CASE EVENT DATE: 20140405
